FAERS Safety Report 18622726 (Version 1)
Quarter: 2020Q4

REPORT INFORMATION
  Report Type: Spontaneous
  Country: US (occurrence: US)
  Receive Date: 20201215
  Receipt Date: 20201215
  Transmission Date: 20210114
  Serious: No
  Sender: FDA-Public Use
  Company Number: None

PATIENT
  Age: 87 Year
  Sex: Male

DRUGS (1)
  1. ZYTIGA [Suspect]
     Active Substance: ABIRATERONE ACETATE
     Route: 048
     Dates: start: 2017

REACTIONS (4)
  - Therapy interrupted [None]
  - Diarrhoea [None]
  - Hypokalaemia [None]
  - Dehydration [None]

NARRATIVE: CASE EVENT DATE: 20201207
